FAERS Safety Report 5313966-2 (Version None)
Quarter: 2007Q2

REPORT INFORMATION
  Report Type: 
  Country: None (occurrence: None)
  Receive Date: 20070501
  Receipt Date: 20070420
  Transmission Date: 20071010
  Serious: Yes (Hospitalization, Other)
  Sender: FDA-Public Use
  Company Number: US-PFIZER INC-2007032849

PATIENT
  Sex: Male

DRUGS (1)
  1. DILANTIN [Suspect]
     Dates: start: 20050301, end: 20050409

REACTIONS (3)
  - EYE DISORDER [None]
  - SCAR [None]
  - STEVENS-JOHNSON SYNDROME [None]
